FAERS Safety Report 4785304-5 (Version None)
Quarter: 2005Q3

REPORT INFORMATION
  Report Type: 
  Country: None (occurrence: None)
  Receive Date: 20050914
  Receipt Date: 20041228
  Transmission Date: 20060218
  Serious: Yes (Death, Hospitalization)
  Sender: FDA-Public Use
  Company Number: 163-20785-04070418

PATIENT
  Age: 49 Year
  Sex: Male
  Weight: 132 kg

DRUGS (8)
  1. THALOMID [Suspect]
     Indication: CHRONIC LYMPHOCYTIC LEUKAEMIA
     Dosage: 100 MG ON DAY1, INCREASING BY 50-100MG Q1-2 WKS, AS TOLERATED, UP TO 1000MG, QHS, ORAL
     Route: 048
     Dates: start: 20040510, end: 20040928
  2. FLUDARABINE PHOSPHATE [Suspect]
     Indication: CHRONIC LYMPHOCYTIC LEUKAEMIA
     Dosage: 25 MG/M2, DAILY FOR 5 DAYS EVERY 28 DAYS, INTRAVENOUS
     Route: 042
     Dates: start: 20040510
  3. ALBUTEROL [Concomitant]
  4. ATROVENT [Concomitant]
  5. DIOVAN [Concomitant]
  6. FLOVENT [Concomitant]
  7. GLUCOPHAGE [Concomitant]
  8. GLUCOTROL [Concomitant]

REACTIONS (8)
  - ACUTE SINUSITIS [None]
  - BRONCHIOLITIS [None]
  - DEATH [None]
  - DEHYDRATION [None]
  - DISEASE PROGRESSION [None]
  - HYPOXIA [None]
  - INFECTION [None]
  - SMALL INTESTINAL OBSTRUCTION [None]
